FAERS Safety Report 25441650 (Version 2)
Quarter: 2025Q2

REPORT INFORMATION
  Report Type: Spontaneous
  Country: US (occurrence: US)
  Receive Date: 20250616
  Receipt Date: 20250620
  Transmission Date: 20250717
  Serious: No
  Sender: PFIZER
  Company Number: US-PFIZER INC-202500122169

PATIENT
  Age: 46 Year
  Sex: Female

DRUGS (8)
  1. CIBINQO [Suspect]
     Active Substance: ABROCITINIB
     Dosage: 100 MG, DAILY
     Route: 048
     Dates: start: 20250423
  2. DULOXETINE [Concomitant]
     Active Substance: DULOXETINE
  3. FISH OIL [Concomitant]
     Active Substance: FISH OIL
  4. HYDROCHLOROTHIAZIDE [Concomitant]
     Active Substance: HYDROCHLOROTHIAZIDE
  5. IRON SLOW [Concomitant]
  6. LEXAPRO [Concomitant]
     Active Substance: ESCITALOPRAM OXALATE
  7. VITAMIN D3 [Concomitant]
     Active Substance: CHOLECALCIFEROL
     Indication: Dermatitis atopic
  8. VITAMINS [Concomitant]
     Active Substance: VITAMINS

REACTIONS (2)
  - Drug ineffective [Unknown]
  - Product dose omission issue [Unknown]
